FAERS Safety Report 9851081 (Version 2)
Quarter: 2014Q1

REPORT INFORMATION
  Report Type: Spontaneous
  Country: BG (occurrence: BG)
  Receive Date: 20140128
  Receipt Date: 20140204
  Transmission Date: 20141002
  Serious: Yes (Other)
  Sender: FDA-Public Use
  Company Number: BG-B.I. PHARMACEUTICALS,INC./RIDGEFIELD-2014-BI-03675YA

PATIENT
  Age: 63 Year
  Sex: Male

DRUGS (5)
  1. HARNAL (TAMSULOSIN) ORODISPERSABLE CR [Suspect]
     Indication: BENIGN PROSTATIC HYPERPLASIA
     Dosage: 0.4 MG
     Route: 048
     Dates: start: 20140110, end: 20140111
  2. LOSAPA (LOSARTAN POTASSIUM) [Concomitant]
     Dosage: 1 DF IN MORNING
  3. NEOPAMID (INDAPAMIDE) [Concomitant]
     Dosage: 1 DF IN MORNING
  4. BISOGAMMA (BISOPROLOL FUMARATE) [Concomitant]
     Dosage: 1 DF PER DAY
  5. EUCREAS (METFORMIN HYDROCHLORIDE, VILDAGLIPTIN) [Concomitant]
     Indication: HYPERTENSION

REACTIONS (1)
  - Hypersensitivity [Recovered/Resolved]
